FAERS Safety Report 6078476-6 (Version None)
Quarter: 2009Q1

REPORT INFORMATION
  Report Type: 
  Country: None (occurrence: None)
  Receive Date: 20090212
  Receipt Date: 20090212
  Transmission Date: 20090719
  Serious: Yes (Other)
  Sender: FDA-Public Use
  Company Number: None

PATIENT
  Age: 28 Year
  Sex: Female
  Weight: 84 kg

DRUGS (1)
  1. PENICILLIN G POTASSIUM [Suspect]
     Indication: BETA HAEMOLYTIC STREPTOCOCCAL INFECTION
     Dosage: 3,000,000 EVERY 4 HR IV
     Route: 042
     Dates: start: 20090116, end: 20090116

REACTIONS (9)
  - BLOOD GLUCOSE INCREASED [None]
  - CAESAREAN SECTION [None]
  - DISCOMFORT [None]
  - DRUG EXPOSURE DURING PREGNANCY [None]
  - ERYTHEMA [None]
  - FEELING ABNORMAL [None]
  - HEADACHE [None]
  - MALAISE [None]
  - VISION BLURRED [None]
